FAERS Safety Report 24170567 (Version 1)
Quarter: 2024Q3

REPORT INFORMATION
  Report Type: Report from Study
  Country: US (occurrence: US)
  Receive Date: 20240803
  Receipt Date: 20240803
  Transmission Date: 20241016
  Serious: Yes (Other)
  Sender: ABBVIE
  Company Number: US-ABBVIE-5864083

PATIENT
  Sex: Male

DRUGS (1)
  1. HUMIRA [Suspect]
     Active Substance: ADALIMUMAB
     Indication: Rheumatoid arthritis
     Dosage: CITRATE FREE
     Route: 058
     Dates: start: 20231101, end: 2024

REACTIONS (4)
  - Road traffic accident [Recovering/Resolving]
  - Clavicle fracture [Unknown]
  - Rib fracture [Unknown]
  - Pneumothorax [Unknown]

NARRATIVE: CASE EVENT DATE: 20240101
